FAERS Safety Report 15938543 (Version 1)
Quarter: 2019Q1

REPORT INFORMATION
  Report Type: Spontaneous
  Country: US (occurrence: US)
  Receive Date: 20190208
  Receipt Date: 20190208
  Transmission Date: 20190417
  Serious: No
  Sender: FDA-Public Use
  Company Number: US-ROCHE-2226178

PATIENT
  Age: 54 Year
  Sex: Female
  Weight: 60.38 kg

DRUGS (2)
  1. XOLAIR [Suspect]
     Active Substance: OMALIZUMAB
     Indication: HYPERSENSITIVITY
     Dosage: 150 MG IN EACH ARM
     Route: 058
     Dates: start: 2013
  2. XOLAIR [Suspect]
     Active Substance: OMALIZUMAB
     Indication: ASTHMA

REACTIONS (7)
  - Product quality issue [Unknown]
  - Infusion related reaction [Recovering/Resolving]
  - Product colour issue [Unknown]
  - Headache [Not Recovered/Not Resolved]
  - Mass [Recovered/Resolved]
  - Fatigue [Not Recovered/Not Resolved]
  - Pain in extremity [Recovering/Resolving]

NARRATIVE: CASE EVENT DATE: 20181203
